FAERS Safety Report 22138685 (Version 2)
Quarter: 2023Q2

REPORT INFORMATION
  Report Type: Spontaneous
  Country: GB (occurrence: GB)
  Receive Date: 20230326
  Receipt Date: 20230412
  Transmission Date: 20230722
  Serious: Yes (Other)
  Sender: FDA-Public Use
  Company Number: GB-CELLTRION INC.-2023GB006122

PATIENT

DRUGS (2)
  1. INFLIXIMAB [Suspect]
     Active Substance: INFLIXIMAB
     Indication: Product used for unknown indication
     Dosage: HAS BEEN ON THE INFUSIONS FOR 2 YEARS
     Route: 065
  2. INFLIXIMAB [Suspect]
     Active Substance: INFLIXIMAB
     Indication: Crohn^s disease
     Dosage: REMSIMA PRE-FILLED PEN 120 MG
     Route: 058

REACTIONS (4)
  - Arthritis infective [Unknown]
  - Fatigue [Unknown]
  - Arthralgia [Unknown]
  - Intentional dose omission [Unknown]
